FAERS Safety Report 7930326-6 (Version None)
Quarter: 2011Q4

REPORT INFORMATION
  Report Type: 
  Country: None (occurrence: None)
  Receive Date: 20111121
  Receipt Date: 20111107
  Transmission Date: 20120403
  Serious: Yes (Death, Hospitalization)
  Sender: FDA-Public Use
  Company Number: US-ROCHE-1011621

PATIENT

DRUGS (1)
  1. HERCEPTIN [Suspect]
     Indication: COLORECTAL CANCER
     Dosage: OVER 90 MINUTES ON DAY 1.
     Route: 042
     Dates: start: 20010421

REACTIONS (2)
  - DISEASE PROGRESSION [None]
  - BLOOD BILIRUBIN INCREASED [None]
